FAERS Safety Report 20629863 (Version 4)
Quarter: 2022Q2

REPORT INFORMATION
  Report Type: Other
  Country: GB (occurrence: GB)
  Receive Date: 20220324
  Receipt Date: 20220426
  Transmission Date: 20220721
  Serious: Yes (Hospitalization, Other)
  Sender: FDA-Public Use
  Company Number: GB-CELLTRION HEALTHCARE HUNGARY KFT-2020GB035202

PATIENT

DRUGS (240)
  1. PERTUZUMAB [Suspect]
     Active Substance: PERTUZUMAB
     Indication: Breast cancer
     Dosage: 840 MG, EVERY 3 WEEKS
     Route: 042
     Dates: start: 20150420
  2. PERTUZUMAB [Suspect]
     Active Substance: PERTUZUMAB
     Indication: Breast cancer metastatic
     Dosage: 840 MG, Q3WK/EVERY 3 WEEKS
     Route: 042
     Dates: start: 20150420
  3. PERTUZUMAB [Suspect]
     Active Substance: PERTUZUMAB
     Dosage: 420 MG, EVERY WEEKS (DOSE FORM:231)
     Route: 042
     Dates: start: 20150420
  4. PERTUZUMAB [Suspect]
     Active Substance: PERTUZUMAB
     Dosage: 420 MG, Q3WK/EVERY 3 WEEKS
     Route: 042
     Dates: start: 20150420
  5. PERTUZUMAB [Suspect]
     Active Substance: PERTUZUMAB
     Dosage: 840 MG, Q3WK/EVERY 3 WEEKS (DOSE FORM: 230)
     Route: 042
     Dates: start: 20150420
  6. PERTUZUMAB [Suspect]
     Active Substance: PERTUZUMAB
     Dosage: 840 MG, EVERY 3 WEEKS
     Route: 042
  7. PERTUZUMAB [Suspect]
     Active Substance: PERTUZUMAB
     Dosage: 840 MG, 3/WEEKS
     Route: 042
     Dates: start: 20150420
  8. PERTUZUMAB [Suspect]
     Active Substance: PERTUZUMAB
     Dosage: 420 MG, Q3WK/EVERY 3 WEEKS (DOSE FORM: 231)
     Route: 042
     Dates: start: 20150420
  9. PERTUZUMAB [Suspect]
     Active Substance: PERTUZUMAB
     Dosage: 420 MG, Q3WK/EVERY 3 WEEKS (DOSE FORM: 230)
     Route: 042
     Dates: start: 20150420
  10. DOCETAXEL [Suspect]
     Active Substance: DOCETAXEL
     Indication: Breast cancer metastatic
     Dosage: 150 MG, Q2WK/EVERY 2 WEEKS (DOSE FORM: 16)
     Route: 042
     Dates: start: 20150421, end: 20150421
  11. DOCETAXEL [Suspect]
     Active Substance: DOCETAXEL
     Indication: Breast cancer female
     Dosage: 120 MG, EVERY 3 WEEKS
     Route: 042
     Dates: start: 20150512
  12. DOCETAXEL [Suspect]
     Active Substance: DOCETAXEL
     Indication: Breast cancer
     Dosage: 120 MG, TIW (EVERY 3 WEEKS)
     Route: 042
     Dates: start: 20150512
  13. DOCETAXEL [Suspect]
     Active Substance: DOCETAXEL
     Dosage: 120 MG, EVERY 3 WEEKS (DOSE FORM: 16)
     Route: 042
     Dates: start: 20150512, end: 20150512
  14. DOCETAXEL [Suspect]
     Active Substance: DOCETAXEL
     Dosage: 150 MG, Q2WK/EVERY 2 WEEKS (DOSE FORM: 17)
     Route: 042
     Dates: start: 20150421, end: 20150421
  15. DOCETAXEL [Suspect]
     Active Substance: DOCETAXEL
     Dosage: 120 MG, Q3W/EVERY 3 WEEKS
     Route: 042
     Dates: start: 20150512, end: 20150804
  16. DOCETAXEL [Suspect]
     Active Substance: DOCETAXEL
     Dosage: 120 MG, EVERY 3 WEEKS
     Route: 042
     Dates: start: 20150512, end: 20150804
  17. DOCETAXEL [Suspect]
     Active Substance: DOCETAXEL
     Dosage: 120 MG, Q3W/EVERY 3 WEEKS
     Route: 042
     Dates: start: 20150512, end: 20150804
  18. DOCETAXEL [Suspect]
     Active Substance: DOCETAXEL
     Dosage: 150 MG, TIW (EVERY 3 WEEKS)
     Route: 042
     Dates: start: 20150421, end: 20150421
  19. DOCETAXEL [Suspect]
     Active Substance: DOCETAXEL
     Dosage: 150 MG, Q2WK/EVERY 2 WEEKS
     Route: 042
     Dates: start: 20150421, end: 20150421
  20. DOCETAXEL [Suspect]
     Active Substance: DOCETAXEL
     Dosage: 150 MG, EVERY 3 WEEKS (DOSE FORM: 16)
     Route: 042
     Dates: start: 20150421, end: 20150421
  21. DOCETAXEL [Suspect]
     Active Substance: DOCETAXEL
     Dosage: 120 MG, EVERY 3 WEEKS
     Route: 042
     Dates: start: 20150512
  22. DOCETAXEL [Suspect]
     Active Substance: DOCETAXEL
     Dosage: 150 MG, QOW (DOSE FORM: 16)
     Route: 042
     Dates: start: 20150421, end: 20150421
  23. DOCETAXEL [Suspect]
     Active Substance: DOCETAXEL
     Dosage: 150 MG, EVERY 3 WEEKS
     Route: 042
     Dates: start: 20150421, end: 20150421
  24. DOCETAXEL [Suspect]
     Active Substance: DOCETAXEL
     Dosage: 150 MG, EVERY 3 WEEKS
     Route: 042
     Dates: start: 20150421, end: 20150421
  25. DOCETAXEL [Suspect]
     Active Substance: DOCETAXEL
     Dosage: 150 MG, Q2WK/EVERY 2 WEEKS
     Route: 042
     Dates: start: 20150421, end: 20150421
  26. DOCETAXEL [Suspect]
     Active Substance: DOCETAXEL
     Dosage: 150 MG EVERY 3 WEEKS; 150 MG, TIW
     Route: 042
     Dates: start: 20150421, end: 20150421
  27. DOCETAXEL [Suspect]
     Active Substance: DOCETAXEL
     Dosage: 150 MG, TIW (EVERY 3 WEEKS)
     Route: 042
     Dates: start: 20150421, end: 20150421
  28. DOCETAXEL [Suspect]
     Active Substance: DOCETAXEL
     Dosage: 120 MG, EVERY 3 WEEKS (DOSE FORM: 16)
     Route: 042
     Dates: start: 20150804, end: 20150804
  29. TRASTUZUMAB [Suspect]
     Active Substance: TRASTUZUMAB
     Indication: Breast cancer
     Dosage: 600 MG, EVERY 3 WEEKS (DOSE FORM: 230)
     Route: 041
     Dates: start: 20150420
  30. TRASTUZUMAB [Suspect]
     Active Substance: TRASTUZUMAB
     Indication: Breast cancer metastatic
     Dosage: (DOSE FORM: 230)
     Route: 042
  31. TRASTUZUMAB [Suspect]
     Active Substance: TRASTUZUMAB
     Dosage: 500 MG  3/WEEKS
     Route: 041
     Dates: start: 20171227
  32. TRASTUZUMAB [Suspect]
     Active Substance: TRASTUZUMAB
     Dosage: 500 MG, Q3WK/EVERY 3 WEEKS (DOSE FORM: 293)
     Route: 042
     Dates: start: 20171227
  33. TRASTUZUMAB [Suspect]
     Active Substance: TRASTUZUMAB
     Dosage: 500 MG, EVERY 3 WEEKS (DOSE FORM: 293)
     Route: 041
     Dates: start: 20171227
  34. TRASTUZUMAB [Suspect]
     Active Substance: TRASTUZUMAB
     Dosage: 600 MG, EVERY 3 WEEKS
     Route: 041
     Dates: start: 20150420
  35. TRASTUZUMAB [Suspect]
     Active Substance: TRASTUZUMAB
     Dosage: 840 MG, TIW (EVERY 3 WEEKS) (DOSE FORM: 293)
     Route: 042
     Dates: start: 20150420
  36. TRASTUZUMAB [Suspect]
     Active Substance: TRASTUZUMAB
     Dosage: 500 MG, Q3WK/EVERY 3 WEEKS (DOSE FORM: 230)
     Route: 042
     Dates: start: 20171227
  37. TRASTUZUMAB [Suspect]
     Active Substance: TRASTUZUMAB
     Dosage: 600 MG, Q3WK/EVERY 3 WEEKS (DOSE FORM: 293)
     Route: 042
  38. TRASTUZUMAB [Suspect]
     Active Substance: TRASTUZUMAB
     Dosage: 600 MG, TIW/EVERY 3 WEEKS (DOSE FORM: 230)
     Route: 041
     Dates: start: 20150420
  39. AMOXICILLIN\CLAVULANATE POTASSIUM [Concomitant]
     Active Substance: AMOXICILLIN\CLAVULANATE POTASSIUM
     Indication: Influenza
     Dosage: 625 MG, QD/EVERY 1 DAY (DOSE FORM: 245)
     Route: 048
     Dates: start: 20180220, end: 20180225
  40. AMOXICILLIN\CLAVULANATE POTASSIUM [Concomitant]
     Active Substance: AMOXICILLIN\CLAVULANATE POTASSIUM
     Dosage: 625 MG, Q8H/TID (DOSE FORM: 245)
     Route: 048
     Dates: start: 20180220, end: 20180225
  41. AMOXICILLIN\CLAVULANATE POTASSIUM [Concomitant]
     Active Substance: AMOXICILLIN\CLAVULANATE POTASSIUM
     Dosage: 625 MG, 0.33 DAY
     Route: 048
     Dates: start: 20180225
  42. AMOXICILLIN\CLAVULANATE POTASSIUM [Concomitant]
     Active Substance: AMOXICILLIN\CLAVULANATE POTASSIUM
     Dosage: UNK
     Dates: start: 20180220, end: 20180225
  43. AMOXICILLIN\CLAVULANATE POTASSIUM [Concomitant]
     Active Substance: AMOXICILLIN\CLAVULANATE POTASSIUM
     Dosage: 3, EVERY 1 DAY (DOSE FORM: 245)
     Route: 048
     Dates: start: 20180220, end: 20180225
  44. AMOXICILLIN\CLAVULANATE POTASSIUM [Concomitant]
     Active Substance: AMOXICILLIN\CLAVULANATE POTASSIUM
     Dosage: EVERY 0.3 DAY
     Route: 048
     Dates: start: 20180220, end: 20180225
  45. AMOXICILLIN\CLAVULANATE POTASSIUM [Concomitant]
     Active Substance: AMOXICILLIN\CLAVULANATE POTASSIUM
     Dosage: 1875 MG, EVERY 1 DAY (DOSE FORM: 245)
     Route: 048
     Dates: start: 20180220, end: 20180225
  46. AMOXICILLIN\CLAVULANATE POTASSIUM [Concomitant]
     Active Substance: AMOXICILLIN\CLAVULANATE POTASSIUM
     Dosage: 625 MG, EVERY 1 DAY
     Route: 048
     Dates: start: 20180220, end: 20180225
  47. AMOXICILLIN\CLAVULANATE POTASSIUM [Concomitant]
     Active Substance: AMOXICILLIN\CLAVULANATE POTASSIUM
     Dosage: UNK UNK, QD/EVERY 1 DAY
     Route: 048
     Dates: start: 20180220, end: 20180225
  48. ACYCLOVIR [Concomitant]
     Active Substance: ACYCLOVIR
     Indication: Genital herpes
     Dosage: 400 MG, QID (DOSE FORM: 245)
     Route: 048
     Dates: start: 20170211, end: 20170218
  49. ACYCLOVIR [Concomitant]
     Active Substance: ACYCLOVIR
     Dosage: 200 MG (DOSE FORM: 245)
     Route: 048
     Dates: start: 20170211, end: 20170218
  50. ACYCLOVIR [Concomitant]
     Active Substance: ACYCLOVIR
     Dosage: 200 MG, QID (DOSE FORM: 245)
     Route: 048
     Dates: start: 20170211, end: 20170218
  51. ACYCLOVIR [Concomitant]
     Active Substance: ACYCLOVIR
     Dosage: 200 MG, EVERY 0.25 DAY (DOSE FORM: 245)
     Route: 048
     Dates: start: 20170211, end: 20170218
  52. ACYCLOVIR [Concomitant]
     Active Substance: ACYCLOVIR
     Dosage: 200 MG, QD/EVERY 1 DAY
     Route: 048
     Dates: start: 20170211, end: 20170218
  53. ACYCLOVIR [Concomitant]
     Active Substance: ACYCLOVIR
     Dosage: 800 MG, QD/EVERY 1 DAY (DOSE FORM:245)
     Route: 048
     Dates: start: 20170211, end: 20170218
  54. ACYCLOVIR [Concomitant]
     Active Substance: ACYCLOVIR
     Dosage: 200 MG, EVERY 0.25 DAY
     Route: 048
     Dates: start: 20170211, end: 20170218
  55. ACYCLOVIR [Concomitant]
     Active Substance: ACYCLOVIR
     Dosage: 800 MG, QD/EVERY 1 DAY
     Route: 048
     Dates: start: 20170211, end: 20170218
  56. ACETAMINOPHEN [Concomitant]
     Active Substance: ACETAMINOPHEN
     Indication: Arthralgia
     Dosage: 1 GRAM, QID
     Route: 048
     Dates: start: 20150427, end: 20150505
  57. ACETAMINOPHEN [Concomitant]
     Active Substance: ACETAMINOPHEN
     Indication: Influenza
     Dosage: 1 G, QID (DOSE FORM:245)
     Route: 048
     Dates: start: 20150427, end: 20150505
  58. ACETAMINOPHEN [Concomitant]
     Active Substance: ACETAMINOPHEN
     Dosage: 1 GRAM, EVERY 0.25 DAY
     Route: 048
     Dates: start: 20150427, end: 20150505
  59. ACETAMINOPHEN [Concomitant]
     Active Substance: ACETAMINOPHEN
     Dosage: 4 G EVERY 1 DAY
     Route: 048
     Dates: start: 20180218, end: 20180220
  60. ACETAMINOPHEN [Concomitant]
     Active Substance: ACETAMINOPHEN
     Dosage: 1 G, QID
     Route: 048
     Dates: start: 20180218, end: 20180220
  61. ACETAMINOPHEN [Concomitant]
     Active Substance: ACETAMINOPHEN
     Dosage: 1 G, QID (DOSE FORM:245)
     Route: 048
     Dates: start: 20180218, end: 20180220
  62. ACETAMINOPHEN [Concomitant]
     Active Substance: ACETAMINOPHEN
     Dosage: 1 GRAM, EVERY 0.25/4 DAY (DOSE FORM: 245)
     Route: 048
     Dates: start: 20180220
  63. ACETAMINOPHEN [Concomitant]
     Active Substance: ACETAMINOPHEN
     Dosage: 1 G (DOSE FORM:245)
     Route: 048
     Dates: start: 20150420, end: 20180217
  64. ACETAMINOPHEN [Concomitant]
     Active Substance: ACETAMINOPHEN
     Dosage: 1 GRAM, QID
     Route: 048
     Dates: start: 20150427
  65. ACETAMINOPHEN [Concomitant]
     Active Substance: ACETAMINOPHEN
     Dosage: 1 GRAM, EVERY 0.25 DAY
     Route: 048
     Dates: start: 20150427
  66. ACETAMINOPHEN [Concomitant]
     Active Substance: ACETAMINOPHEN
     Dosage: 4 G EVERY 1 DAY (DOSE FORM:245)
     Route: 048
     Dates: start: 20180218, end: 20180220
  67. AMOXICILLIN [Concomitant]
     Active Substance: AMOXICILLIN
     Indication: Influenza
     Dosage: 625 MG, QD/EVERY 1 DAY
     Route: 048
     Dates: start: 20180220, end: 20180225
  68. AMOXICILLIN [Concomitant]
     Active Substance: AMOXICILLIN
     Dosage: UNK
  69. AMOXICILLIN [Concomitant]
     Active Substance: AMOXICILLIN
     Dosage: UNK
     Route: 065
  70. CALCEOS [Concomitant]
     Active Substance: CALCIUM CARBONATE\CHOLECALCIFEROL
     Indication: Product used for unknown indication
     Dosage: UNK, 1 QD/EVERY 1 DAY
     Route: 048
     Dates: start: 20150713, end: 20150824
  71. CALCEOS [Concomitant]
     Active Substance: CALCIUM CARBONATE\CHOLECALCIFEROL
     Dosage: 1 DF 1 EVERY 1 DAY (DOSE FORM: 245)
     Route: 048
     Dates: start: 20150713, end: 20150824
  72. CALCEOS [Concomitant]
     Active Substance: CALCIUM CARBONATE\CHOLECALCIFEROL
     Dosage: 1 TABLET EVERY 1 DAY
     Route: 048
     Dates: start: 20150713
  73. CALCEOS [Concomitant]
     Active Substance: CALCIUM CARBONATE\CHOLECALCIFEROL
     Dosage: UNK, 1 QD/EVERY 1 DAY (DOSE FORM: 245)
     Route: 048
     Dates: start: 20150713, end: 20150824
  74. CALCEOS [Concomitant]
     Active Substance: CALCIUM CARBONATE\CHOLECALCIFEROL
     Dosage: UNK, QD
     Route: 048
     Dates: start: 20150713, end: 20150824
  75. CALCEOS [Concomitant]
     Active Substance: CALCIUM CARBONATE\CHOLECALCIFEROL
     Dosage: UNK, 1 TABLET 1 QD/EVERY 1 DAY (DOSE FORM: 245)
     Route: 048
     Dates: start: 20150713
  76. XGEVA [Concomitant]
     Active Substance: DENOSUMAB
     Indication: Product used for unknown indication
     Dosage: 120 MG, QM/EVERY 1 MONTH (DOSE FORM: 245)
     Route: 058
     Dates: start: 20150623, end: 20170508
  77. XGEVA [Concomitant]
     Active Substance: DENOSUMAB
     Dosage: 120 MG, BID
     Route: 048
     Dates: start: 20180115
  78. XGEVA [Concomitant]
     Active Substance: DENOSUMAB
     Dosage: 120 MG Q12HR/BID (DOSE FORM: 245)
     Route: 048
     Dates: start: 20180115
  79. XGEVA [Concomitant]
     Active Substance: DENOSUMAB
     Dosage: 240 MG, QD/EVERY 1 DAY
     Route: 048
  80. XGEVA [Concomitant]
     Active Substance: DENOSUMAB
     Dosage: 240 MG, QD/EVERY 1 DAY (DOSE FORM: 245)
     Dates: start: 20180115
  81. XGEVA [Concomitant]
     Active Substance: DENOSUMAB
     Dosage: 120 MG Q12HR/BID (DOSE FORM: 245)
     Route: 048
  82. XGEVA [Concomitant]
     Active Substance: DENOSUMAB
     Dosage: 120 MG, QMO/EVERY 1 MONTH
     Route: 058
     Dates: start: 20150623
  83. AMOXIL [Concomitant]
     Active Substance: AMOXICILLIN
     Indication: Chest pain
     Dosage: UNK
     Dates: start: 20171227, end: 20180102
  84. AMOXIL [Concomitant]
     Active Substance: AMOXICILLIN
     Indication: Lower respiratory tract infection
     Dosage: 625 MG EVERY 1 DAY (DOSE FORM: 245)
     Route: 048
     Dates: start: 20180220, end: 20180225
  85. AMOXIL [Concomitant]
     Active Substance: AMOXICILLIN
     Dosage: 500 MG EVERY 1 DAY (DOSE FORM: 245)
     Route: 048
     Dates: start: 20171227, end: 20180102
  86. AMOXIL [Concomitant]
     Active Substance: AMOXICILLIN
     Dosage: 1875 MG, QD/EVERY 1 DAY (DOSE FORM: 245)
     Route: 048
     Dates: start: 20180225
  87. AMOXIL [Concomitant]
     Active Substance: AMOXICILLIN
     Dosage: 500 MG QD/EVERY 1 DAY
     Route: 048
     Dates: start: 20171227, end: 20180102
  88. CODEINE [Concomitant]
     Active Substance: CODEINE
     Indication: Arthralgia
     Dosage: 30 MG (DOSE FORM: 245)
     Route: 048
     Dates: start: 20151221, end: 20160425
  89. CODEINE [Concomitant]
     Active Substance: CODEINE
     Dosage: UNK
  90. CODEINE [Concomitant]
     Active Substance: CODEINE
     Dosage: UNK, AS NECCESSARY (DOSE FORM: 245)
     Route: 065
     Dates: start: 20151221, end: 20160425
  91. CODEINE [Concomitant]
     Active Substance: CODEINE
     Dosage: UNK
     Dates: start: 20151221, end: 20160425
  92. CODEINE [Concomitant]
     Active Substance: CODEINE
     Dosage: 30 MG, AS NEEDED/AS NECESSARY
     Route: 048
     Dates: start: 20151221, end: 20160425
  93. AMOXICILLIN\CLAVULANATE POTASSIUM [Concomitant]
     Active Substance: AMOXICILLIN\CLAVULANATE POTASSIUM
     Dosage: 625 MG EVERY 1 DAY
     Route: 048
     Dates: start: 20180220, end: 20180225
  94. AMOXICILLIN\CLAVULANATE POTASSIUM [Concomitant]
     Active Substance: AMOXICILLIN\CLAVULANATE POTASSIUM
     Dosage: 1875, QD/EVERY 1 DAY
     Route: 048
     Dates: start: 20180225
  95. AMOXICILLIN\CLAVULANATE POTASSIUM [Concomitant]
     Active Substance: AMOXICILLIN\CLAVULANATE POTASSIUM
     Dosage: 625 MG, 0.33/DAY
     Route: 048
     Dates: start: 20180225
  96. PIPERACILLIN SODIUM\TAZOBACTAM SODIUM [Concomitant]
     Active Substance: PIPERACILLIN SODIUM\TAZOBACTAM SODIUM
     Indication: Neutropenic sepsis
     Dosage: 4.5 G, QD/ EVERY 1 DAY (DOSE FORM: 230)
     Route: 042
     Dates: start: 20180218, end: 20180220
  97. PIPERACILLIN SODIUM\TAZOBACTAM SODIUM [Concomitant]
     Active Substance: PIPERACILLIN SODIUM\TAZOBACTAM SODIUM
     Indication: Influenza
     Dosage: 4.5 G, QD (4.5 GRAM, QD (0.33 DAY) (DOSE FORM:120)
     Route: 042
     Dates: start: 20180220
  98. PIPERACILLIN SODIUM\TAZOBACTAM SODIUM [Concomitant]
     Active Substance: PIPERACILLIN SODIUM\TAZOBACTAM SODIUM
     Dosage: 13.5 MG QD/EVERY 1 DAY (DOSE FORM: 230)
     Route: 042
     Dates: start: 20150429
  99. PIPERACILLIN SODIUM\TAZOBACTAM SODIUM [Concomitant]
     Active Substance: PIPERACILLIN SODIUM\TAZOBACTAM SODIUM
     Dosage: 4.5 GRAM, TID
     Route: 042
     Dates: start: 20150429
  100. PIPERACILLIN SODIUM\TAZOBACTAM SODIUM [Concomitant]
     Active Substance: PIPERACILLIN SODIUM\TAZOBACTAM SODIUM
     Dosage: 4.5 G EVERY 3 DAYS/Q8HR/TID (DOSE FORM: 120)
     Route: 042
     Dates: start: 20150429
  101. PIPERACILLIN SODIUM\TAZOBACTAM SODIUM [Concomitant]
     Active Substance: PIPERACILLIN SODIUM\TAZOBACTAM SODIUM
     Dosage: 4.5 G (DOSE FORM: 230)
     Route: 042
     Dates: start: 20150429
  102. PIPERACILLIN SODIUM\TAZOBACTAM SODIUM [Concomitant]
     Active Substance: PIPERACILLIN SODIUM\TAZOBACTAM SODIUM
     Dosage: 13.4 MG QD/EVERY 1 DAY (DOSE FORM: 120)
     Route: 042
     Dates: start: 20150429
  103. PIPERACILLIN SODIUM\TAZOBACTAM SODIUM [Concomitant]
     Active Substance: PIPERACILLIN SODIUM\TAZOBACTAM SODIUM
     Dosage: 4.5 G, EVERY 0.33 DAY/Q8HR (DOSE FORM: 120)
     Route: 042
     Dates: start: 20180218, end: 20180220
  104. PIPERACILLIN SODIUM\TAZOBACTAM SODIUM [Concomitant]
     Active Substance: PIPERACILLIN SODIUM\TAZOBACTAM SODIUM
     Dosage: 4.5 G EVERY 0.3 DAYS
     Route: 042
     Dates: start: 20150429
  105. PIPERACILLIN SODIUM\TAZOBACTAM SODIUM [Concomitant]
     Active Substance: PIPERACILLIN SODIUM\TAZOBACTAM SODIUM
     Dosage: 4.5 GRAM, TID
     Route: 042
     Dates: start: 20180218, end: 20180220
  106. PIPERACILLIN SODIUM\TAZOBACTAM SODIUM [Concomitant]
     Active Substance: PIPERACILLIN SODIUM\TAZOBACTAM SODIUM
     Dosage: 13.5 MG QD/EVERY 1 DAY (DOSE FORM: 230)
     Route: 042
     Dates: start: 20180218, end: 20180220
  107. PIPERACILLIN SODIUM\TAZOBACTAM SODIUM [Concomitant]
     Active Substance: PIPERACILLIN SODIUM\TAZOBACTAM SODIUM
     Dosage: 4.5 G, EVERY 0.33 DAY
     Route: 042
     Dates: start: 20180220
  108. DENOSUMAB [Concomitant]
     Active Substance: DENOSUMAB
     Indication: Product used for unknown indication
     Dosage: 120 MG EVERY 1 MONTH
     Route: 058
     Dates: start: 20150623
  109. DENOSUMAB [Concomitant]
     Active Substance: DENOSUMAB
     Dosage: 120 MG, MONTHLY
     Route: 058
     Dates: start: 20150623, end: 20170508
  110. DENOSUMAB [Concomitant]
     Active Substance: DENOSUMAB
     Dosage: 120 MG, QMO EVERY 1 MONTH (DOSE FORM: 245)
     Route: 058
     Dates: start: 20150623
  111. DENOSUMAB [Concomitant]
     Active Substance: DENOSUMAB
     Dosage: 120 MG, QMO EVERY 1 MONTH (DOSE FORM: 245)
     Route: 058
     Dates: start: 20150623, end: 20170508
  112. DENOSUMAB [Concomitant]
     Active Substance: DENOSUMAB
     Dosage: 120 MG 0.5 IN A DAY
     Route: 048
     Dates: start: 20180115
  113. DENOSUMAB [Concomitant]
     Active Substance: DENOSUMAB
     Dosage: 120 MG EVERY 0.5 DAY
     Route: 048
  114. DENOSUMAB [Concomitant]
     Active Substance: DENOSUMAB
     Dosage: 120 MG, QD/EVERY 1 DAY (DOSE FORM: 245)
     Route: 048
     Dates: start: 20180115
  115. DENOSUMAB [Concomitant]
     Active Substance: DENOSUMAB
     Dosage: 120 MG, BID (DOSE FORM: 245)
     Route: 048
     Dates: start: 20180115
  116. LANOLIN\LIGHT MINERAL OIL\PARAFFIN [Concomitant]
     Active Substance: LANOLIN\LIGHT MINERAL OIL\PARAFFIN
     Indication: Pruritus
     Dosage: UNK, PRN (1 TABLESPOON); AS NECESSARY (DOSE: 17)
     Route: 061
     Dates: start: 20150515
  117. LANOLIN\LIGHT MINERAL OIL\PARAFFIN [Concomitant]
     Active Substance: LANOLIN\LIGHT MINERAL OIL\PARAFFIN
     Dosage: UNK UNK, AS NECESSARY; ; (DOSE FORM: 17)
     Route: 061
     Dates: start: 20150515
  118. LANOLIN\LIGHT MINERAL OIL\PARAFFIN [Concomitant]
     Active Substance: LANOLIN\LIGHT MINERAL OIL\PARAFFIN
     Dosage: 1 TABLESPOON
     Route: 061
     Dates: start: 20150515
  119. LANOLIN\LIGHT MINERAL OIL\PARAFFIN [Concomitant]
     Active Substance: LANOLIN\LIGHT MINERAL OIL\PARAFFIN
     Dosage: UNK (AS NECESSARY)
     Route: 061
     Dates: start: 20150515
  120. CALCIUM CARBONATE\CHOLECALCIFEROL [Concomitant]
     Active Substance: CALCIUM CARBONATE\CHOLECALCIFEROL
     Indication: Product used for unknown indication
     Dosage: 1 TABLET EVERY 0.5 DAY
     Route: 048
     Dates: start: 20150623, end: 20150625
  121. CALCIUM CARBONATE\CHOLECALCIFEROL [Concomitant]
     Active Substance: CALCIUM CARBONATE\CHOLECALCIFEROL
     Dosage: UNK, BID (2 EVERY 1 DAY/DOSE FORM: 245)
     Route: 048
     Dates: start: 20150623, end: 20150625
  122. CALCIUM CARBONATE\CHOLECALCIFEROL [Concomitant]
     Active Substance: CALCIUM CARBONATE\CHOLECALCIFEROL
     Dosage: EVERY 12 HR/BID (DOSE FORM: 245)
     Route: 048
     Dates: start: 20150623, end: 20150625
  123. CALCIUM CARBONATE\CHOLECALCIFEROL [Concomitant]
     Active Substance: CALCIUM CARBONATE\CHOLECALCIFEROL
     Dosage: 2 DF EVERY 1 DAY (DOSE FORM: 245)
     Route: 048
     Dates: start: 20150623, end: 20150625
  124. CALCIUM CARBONATE\CHOLECALCIFEROL [Concomitant]
     Active Substance: CALCIUM CARBONATE\CHOLECALCIFEROL
     Dosage: 0.5 MG,  QD/EVERY 1 DAY
     Route: 048
  125. CALCIUM CARBONATE\CHOLECALCIFEROL [Concomitant]
     Active Substance: CALCIUM CARBONATE\CHOLECALCIFEROL
     Dosage: 1 DF EVERY12HR/ BID (DOSE FORM: 245)
     Route: 048
     Dates: start: 20150623, end: 20150625
  126. CALCIUM CARBONATE\CHOLECALCIFEROL [Concomitant]
     Active Substance: CALCIUM CARBONATE\CHOLECALCIFEROL
     Dosage: UNK UNK, QD/1 EVERY 1 DAY (1 TABLET)
     Route: 048
     Dates: start: 20150623, end: 20150625
  127. CALCIUM CARBONATE\CHOLECALCIFEROL [Concomitant]
     Active Substance: CALCIUM CARBONATE\CHOLECALCIFEROL
     Dosage: 0.5 DAY (DOSE FORM: 245)
     Route: 048
     Dates: start: 20150623, end: 20150625
  128. CALCIUM CARBONATE\CHOLECALCIFEROL [Concomitant]
     Active Substance: CALCIUM CARBONATE\CHOLECALCIFEROL
     Dosage: 1 TABLET (2 EVERY 1 DAY/DOSE FORM: 245)
     Route: 048
     Dates: start: 20150623, end: 20150625
  129. TAMIFLU [Concomitant]
     Active Substance: OSELTAMIVIR PHOSPHATE
     Indication: Influenza
     Dosage: 75 MG, 0.5/DAY
     Route: 048
     Dates: start: 20180226
  130. TAMIFLU [Concomitant]
     Active Substance: OSELTAMIVIR PHOSPHATE
     Dosage: 75 MG, EVERY 0.5 DAY
     Route: 048
     Dates: start: 20180219, end: 20180226
  131. TAMIFLU [Concomitant]
     Active Substance: OSELTAMIVIR PHOSPHATE
     Dosage: 75 MG (DOSE FORM: 245)
     Route: 048
     Dates: start: 20180219, end: 20180226
  132. TAMIFLU [Concomitant]
     Active Substance: OSELTAMIVIR PHOSPHATE
     Dosage: 75 MG, QD/EVERY 1 DAY (DOSE FORM: 245)
     Route: 048
     Dates: start: 20180219, end: 20180226
  133. TAMIFLU [Concomitant]
     Active Substance: OSELTAMIVIR PHOSPHATE
     Dosage: 150 MG QD/EVERY 1 DAY (DOSE FORM: 245)
     Route: 048
     Dates: start: 20180226
  134. TAMIFLU [Concomitant]
     Active Substance: OSELTAMIVIR PHOSPHATE
     Dosage: 150 MG QD/EVERY 1 DAY (DOSE FORM: 245)
     Route: 048
     Dates: start: 20180219, end: 20180226
  135. TAMIFLU [Concomitant]
     Active Substance: OSELTAMIVIR PHOSPHATE
     Dosage: 75 MG EVERY 1 DAY
     Route: 048
     Dates: start: 20180219, end: 20180226
  136. PARAFFIN [Concomitant]
     Active Substance: PARAFFIN
     Indication: Epistaxis
     Dosage: UNK, AS NECESSARY
     Route: 061
     Dates: start: 20160816
  137. PARAFFIN [Concomitant]
     Active Substance: PARAFFIN
     Dosage: 1, AS NECESSARY
     Route: 061
     Dates: start: 20181112
  138. PARAFFIN [Concomitant]
     Active Substance: PARAFFIN
     Dosage: UNK
     Route: 061
     Dates: start: 20181112
  139. PARAFFIN [Concomitant]
     Active Substance: PARAFFIN
     Dosage: 1 TBSP (TABLESPOON (DOSE FORM: 21)
     Route: 061
     Dates: start: 20160816
  140. PARAFFIN [Concomitant]
     Active Substance: PARAFFIN
     Dosage: UNK
  141. HYDROCORTISONE [Concomitant]
     Active Substance: HYDROCORTISONE
     Indication: Eczema
     Dosage: 1% CREAM (1 DRP) (DOSE FORM:17)
     Route: 065
  142. HYDROCORTISONE [Concomitant]
     Active Substance: HYDROCORTISONE
     Dosage: 400 MG (DOSE FORM: 245)
     Route: 048
     Dates: start: 20161229
  143. HYDROCORTISONE [Concomitant]
     Active Substance: HYDROCORTISONE
     Dosage: 1 DRP (DOSE FORM:17)
     Route: 061
  144. HYDROCORTISONE [Concomitant]
     Active Substance: HYDROCORTISONE
     Dosage: UNK, PRN; AS NECESSARY (DOSE FORM: 17)
     Route: 061
  145. HYDROCORTISONE [Concomitant]
     Active Substance: HYDROCORTISONE
     Dosage: 1 DRP (DOSE FORM:17)
     Route: 065
  146. NAPROXEN [Concomitant]
     Active Substance: NAPROXEN
     Indication: Arthralgia
     Dosage: 500 MG
     Route: 048
     Dates: start: 20180218, end: 20180220
  147. NAPROXEN [Concomitant]
     Active Substance: NAPROXEN
     Indication: Influenza
     Dosage: 500 MG EVERY 0.5 DAY
     Route: 048
     Dates: start: 20180218, end: 20180220
  148. NAPROXEN [Concomitant]
     Active Substance: NAPROXEN
     Dosage: 500 MG, BID/Q12HR (DOSE FORM: 245)
     Route: 048
     Dates: start: 20180218, end: 20180220
  149. NAPROXEN [Concomitant]
     Active Substance: NAPROXEN
     Dosage: 1000 MG, EVERY 1 DAY (DOSE FORM: 245)
     Route: 048
     Dates: start: 20180218, end: 20180220
  150. NAPROXEN [Concomitant]
     Active Substance: NAPROXEN
     Dosage: UNK
     Route: 048
     Dates: start: 2015, end: 20160314
  151. NAPROXEN [Concomitant]
     Active Substance: NAPROXEN
     Dosage: 250 MG (DOSE FORM: 245)
     Route: 048
     Dates: start: 2015, end: 20160314
  152. NAPROXEN [Concomitant]
     Active Substance: NAPROXEN
     Dosage: 500 MG (DOSE FORM: 245)
     Route: 048
     Dates: start: 2015, end: 20160314
  153. NAPROXEN [Concomitant]
     Active Substance: NAPROXEN
     Dosage: (DOSE FORM: 245)
     Route: 048
     Dates: start: 2015, end: 20160314
  154. NAPROXEN [Concomitant]
     Active Substance: NAPROXEN
     Dosage: 500 MG, BID (DOSE FORM: 245)
     Route: 048
     Dates: start: 20180218, end: 20180220
  155. PARAFFIN [Concomitant]
     Active Substance: PARAFFIN
     Dosage: UNK, AS NECESSARY
     Route: 061
     Dates: start: 20160816
  156. PARAFFIN [Concomitant]
     Active Substance: PARAFFIN
     Dosage: UNK
     Route: 061
  157. PARAFFIN [Concomitant]
     Active Substance: PARAFFIN
     Dosage: UNK
     Route: 061
     Dates: start: 20160816
  158. POLYETHYLENE GLYCOL 3350\POTASSIUM CHLORIDE\SODIUM BICARBONATE\SODIUM [Concomitant]
     Active Substance: POLYETHYLENE GLYCOL 3350\POTASSIUM CHLORIDE\SODIUM BICARBONATE\SODIUM CHLORIDE
     Indication: Influenza
     Dosage: 1 SACHET
     Route: 048
     Dates: start: 20180219, end: 20180220
  159. POLYETHYLENE GLYCOL 3350\POTASSIUM CHLORIDE\SODIUM BICARBONATE\SODIUM [Concomitant]
     Active Substance: POLYETHYLENE GLYCOL 3350\POTASSIUM CHLORIDE\SODIUM BICARBONATE\SODIUM CHLORIDE
     Dosage: 1 SACHET EVERY 0.5 DAY
     Route: 048
     Dates: start: 20180219, end: 20180220
  160. POLYETHYLENE GLYCOL 3350\POTASSIUM CHLORIDE\SODIUM BICARBONATE\SODIUM [Concomitant]
     Active Substance: POLYETHYLENE GLYCOL 3350\POTASSIUM CHLORIDE\SODIUM BICARBONATE\SODIUM CHLORIDE
     Dosage: 1 DF, BID (1 SACHET)
     Route: 048
     Dates: start: 20180219, end: 20180220
  161. POLYETHYLENE GLYCOL 3350\POTASSIUM CHLORIDE\SODIUM BICARBONATE\SODIUM [Concomitant]
     Active Substance: POLYETHYLENE GLYCOL 3350\POTASSIUM CHLORIDE\SODIUM BICARBONATE\SODIUM CHLORIDE
     Dosage: 0.5
     Route: 048
     Dates: start: 20180219, end: 20180220
  162. POLYETHYLENE GLYCOL 3350\POTASSIUM CHLORIDE\SODIUM BICARBONATE\SODIUM [Concomitant]
     Active Substance: POLYETHYLENE GLYCOL 3350\POTASSIUM CHLORIDE\SODIUM BICARBONATE\SODIUM CHLORIDE
     Dosage: UNK
     Route: 065
     Dates: start: 20180219, end: 20180220
  163. POLYETHYLENE GLYCOL 3350\POTASSIUM CHLORIDE\SODIUM BICARBONATE\SODIUM [Concomitant]
     Active Substance: POLYETHYLENE GLYCOL 3350\POTASSIUM CHLORIDE\SODIUM BICARBONATE\SODIUM CHLORIDE
     Dosage: EVERY 0.5 DAY (SOLUTION)
     Route: 048
     Dates: start: 20180219, end: 20180220
  164. POLYETHYLENE GLYCOL 3350\POTASSIUM CHLORIDE\SODIUM BICARBONATE\SODIUM [Concomitant]
     Active Substance: POLYETHYLENE GLYCOL 3350\POTASSIUM CHLORIDE\SODIUM BICARBONATE\SODIUM CHLORIDE
     Dosage: UNK
     Route: 065
     Dates: start: 20180219, end: 20180220
  165. POLYETHYLENE GLYCOL 3350\POTASSIUM CHLORIDE\SODIUM BICARBONATE\SODIUM [Concomitant]
     Active Substance: POLYETHYLENE GLYCOL 3350\POTASSIUM CHLORIDE\SODIUM BICARBONATE\SODIUM CHLORIDE
     Dosage: 1 OTHER (2 EVERY 1 DAY)
     Route: 048
     Dates: start: 20180219, end: 20180220
  166. DOMPERIDONE [Concomitant]
     Active Substance: DOMPERIDONE
     Indication: Nausea
     Dosage: 10 MILLIGRAM
     Dates: start: 20150420, end: 20150427
  167. DOMPERIDONE [Concomitant]
     Active Substance: DOMPERIDONE
     Dosage: 10 MG, Q3D/EVERY 3 DAY
     Route: 048
     Dates: start: 20150420, end: 20150427
  168. DOMPERIDONE [Concomitant]
     Active Substance: DOMPERIDONE
     Dosage: 10 MILLIGRAM
     Route: 048
     Dates: start: 20150420, end: 20150427
  169. DOMPERIDONE [Concomitant]
     Active Substance: DOMPERIDONE
     Dosage: 10 MG, TID (DOSE FORM:245)
     Route: 048
     Dates: start: 20150420, end: 20150427
  170. DOMPERIDONE [Concomitant]
     Active Substance: DOMPERIDONE
     Dosage: 10 MG EVERY 0.3 DAY
     Route: 048
     Dates: start: 20150420, end: 20150427
  171. IBUPROFEN [Concomitant]
     Active Substance: IBUPROFEN
     Indication: Spinal pain
     Dosage: 400 MG (DOSE FORM: 245)
     Route: 048
     Dates: start: 20161229
  172. IBUPROFEN [Concomitant]
     Active Substance: IBUPROFEN
     Dosage: 1 AS NECESSARY (DOSE FORM: 245)
     Route: 048
     Dates: start: 20161229
  173. IBUPROFEN [Concomitant]
     Active Substance: IBUPROFEN
     Dosage: 400 MG
     Route: 048
     Dates: start: 20161229
  174. IBUPROFEN [Concomitant]
     Active Substance: IBUPROFEN
     Dosage: UNK
     Route: 048
     Dates: start: 20161229
  175. PFIZER-BIONTECH COVID-19 VACCINE [Concomitant]
     Active Substance: TOZINAMERAN
     Dosage: UNK
  176. PFIZER-BIONTECH COVID-19 VACCINE [Concomitant]
     Active Substance: TOZINAMERAN
     Dosage: 30 MICROGRAM, QD/EVERY 1 DAY (OTHER)
     Route: 030
     Dates: start: 20210204, end: 20210204
  177. PFIZER-BIONTECH COVID-19 VACCINE [Concomitant]
     Active Substance: TOZINAMERAN
     Dosage: 30 MICROGRAM, QD/EVERY 1 DAY (OTHER)
     Route: 030
     Dates: start: 20210422, end: 20210422
  178. ENOXAPARIN [Concomitant]
     Active Substance: ENOXAPARIN
     Indication: Influenza
     Dosage: 40 MG
     Route: 058
     Dates: start: 20180219, end: 20180220
  179. ENOXAPARIN [Concomitant]
     Active Substance: ENOXAPARIN
     Dosage: 40 MG, EVERY 1 DAY
     Route: 058
     Dates: start: 20180219, end: 20180220
  180. ENOXAPARIN [Concomitant]
     Active Substance: ENOXAPARIN
     Dosage: 40 MG, QD
     Route: 058
     Dates: start: 20180220
  181. METHYL SALICYLATE [Concomitant]
     Active Substance: METHYL SALICYLATE
     Indication: Product used for unknown indication
     Dosage: UNK (AS NECESSARY)
     Route: 048
     Dates: start: 20161229
  182. METHYL SALICYLATE [Concomitant]
     Active Substance: METHYL SALICYLATE
     Dosage: UNK UNK, PRN; AS NECESSARY
     Dates: start: 20161229
  183. RANITIDINE [Concomitant]
     Active Substance: RANITIDINE
     Indication: Gastrooesophageal reflux disease
     Dosage: 300 MG QD/EVERY 1 DAY (DOSE FORM: 245)
     Route: 048
     Dates: start: 20150421
  184. RANITIDINE [Concomitant]
     Active Substance: RANITIDINE
     Dosage: 150 MG QD/EVERY 1 DAY (DOSE FORM: 245)
     Route: 048
     Dates: start: 20150421
  185. RANITIDINE [Concomitant]
     Active Substance: RANITIDINE
     Dosage: 150 MG, 0.5 DAY
     Route: 048
     Dates: start: 20150421
  186. RANITIDINE [Concomitant]
     Active Substance: RANITIDINE
     Dosage: 300 MG QD/EVERY 1 DAY
     Route: 048
     Dates: start: 20150421
  187. RANITIDINE [Concomitant]
     Active Substance: RANITIDINE
     Dosage: 150 MG (DOSE FORM: 245)
     Route: 048
     Dates: start: 20150421
  188. AQUEOUS CREAM [Concomitant]
     Indication: Eczema
     Dosage: UNK
     Route: 061
     Dates: start: 20181112
  189. AQUEOUS CREAM [Concomitant]
     Dosage: (DOSE FORM: 17)
     Dates: start: 20181112
  190. AQUEOUS CREAM [Concomitant]
     Dosage: 1 AS NEEDED (DOSE FORM: 17)
     Route: 061
     Dates: start: 20181112
  191. AQUEOUS CREAM [Concomitant]
     Dosage: 1 AS NECESSARY
     Route: 061
     Dates: start: 20181112
  192. OMEPRAZOLE [Concomitant]
     Active Substance: OMEPRAZOLE
     Indication: Gastrooesophageal reflux disease
     Dosage: 220 MG QD/EVERY 1 DAY (DOSE FORM: 245)
     Route: 048
     Dates: start: 20150622, end: 20150713
  193. OMEPRAZOLE [Concomitant]
     Active Substance: OMEPRAZOLE
     Indication: Gastritis
     Dosage: 20 MG (DOSE FORM: 245)
     Route: 048
  194. OMEPRAZOLE [Concomitant]
     Active Substance: OMEPRAZOLE
     Dosage: 20 MG, QD (DOSE FORM: 245)
     Route: 048
     Dates: start: 20150713
  195. OMEPRAZOLE [Concomitant]
     Active Substance: OMEPRAZOLE
     Dosage: 20 MG EVERY 1 DAY (DOSE FORM: 245)
     Route: 048
     Dates: start: 20150622, end: 20150713
  196. OMEPRAZOLE [Concomitant]
     Active Substance: OMEPRAZOLE
     Dosage: 220 MG EVERY 1 DAY
     Route: 048
     Dates: start: 20150622, end: 20150713
  197. OMEPRAZOLE [Concomitant]
     Active Substance: OMEPRAZOLE
     Dosage: 20 MG QD/EVERY 1 DAY
     Route: 048
     Dates: start: 20150622, end: 20150713
  198. OMEPRAZOLE [Concomitant]
     Active Substance: OMEPRAZOLE
     Dosage: 20 MG QD
     Route: 048
     Dates: start: 20150622
  199. SODIUM ALGINATE\SODIUM BICARBONATE [Concomitant]
     Active Substance: SODIUM ALGINATE\SODIUM BICARBONATE
     Indication: Gastrooesophageal reflux disease
     Dosage: 20 ML, PRN; AS NECESSARY
     Route: 048
     Dates: start: 201505
  200. SODIUM ALGINATE\SODIUM BICARBONATE [Concomitant]
     Active Substance: SODIUM ALGINATE\SODIUM BICARBONATE
     Dosage: UNK
     Route: 065
  201. LOPERAMIDE [Concomitant]
     Active Substance: LOPERAMIDE
     Indication: Diarrhoea
     Dosage: 2 MG (DOSE FORM: 245)
     Route: 048
     Dates: start: 20150516, end: 20150516
  202. LOPERAMIDE [Concomitant]
     Active Substance: LOPERAMIDE
     Dosage: 2 MG AS NEEDED/AS NECESSARY (DOSE FORM: 245)
     Route: 048
     Dates: start: 20150516, end: 20150516
  203. LOPERAMIDE [Concomitant]
     Active Substance: LOPERAMIDE
     Dosage: 2 MG EVERY 1 DAY AS NEEDED (DOSE FORM: 245)
     Route: 048
     Dates: start: 20150516, end: 20150516
  204. LOPERAMIDE [Concomitant]
     Active Substance: LOPERAMIDE
     Dosage: 2 MG
     Route: 048
     Dates: start: 20150516, end: 20150516
  205. SODIUM CHLORIDE [Concomitant]
     Active Substance: SODIUM CHLORIDE
     Indication: Abdominal pain
     Dosage: 1000 ML, AS NECESSARY (0.9%, AS NEEDED) (DOSE FORM: 231)
     Route: 042
     Dates: start: 20160125, end: 20160125
  206. SODIUM CHLORIDE [Concomitant]
     Active Substance: SODIUM CHLORIDE
     Dosage: 0.9%, AS NEEDED.
     Route: 042
     Dates: start: 20160125, end: 20160125
  207. SODIUM CHLORIDE [Concomitant]
     Active Substance: SODIUM CHLORIDE
     Dosage: 1000 ML
     Route: 042
     Dates: start: 20160125, end: 20160125
  208. CODEINE PHOSPHATE [Concomitant]
     Active Substance: CODEINE PHOSPHATE
     Indication: Arthralgia
     Dosage: 30 MG
     Route: 048
     Dates: start: 20160816
  209. CODEINE PHOSPHATE [Concomitant]
     Active Substance: CODEINE PHOSPHATE
     Dosage: 30 MG AS NECESSARY (DOSE FORM: 245)
     Route: 048
     Dates: start: 20160816
  210. CODEINE PHOSPHATE [Concomitant]
     Active Substance: CODEINE PHOSPHATE
     Dosage: 30 MG (DOSE FORM: 245)
     Route: 048
     Dates: start: 20160816
  211. ACYCLOVIR [Concomitant]
     Active Substance: ACYCLOVIR
     Dosage: 200 MG
     Dates: start: 20170211, end: 20170218
  212. SENNAE [Concomitant]
     Indication: Influenza
     Dosage: 1 SACHET, QD/EVEY 1 DAY
     Route: 048
     Dates: start: 20180219, end: 20180220
  213. SENNAE [Concomitant]
     Dosage: SOLUTION (EVERY 1 DAY)
     Route: 048
     Dates: start: 20180219, end: 20180220
  214. SENNAE [Concomitant]
     Dosage: UNK UNK, QD;
     Route: 048
     Dates: start: 20180209, end: 20180220
  215. SENNAE [Concomitant]
     Dosage: 1 DF, QD (1 SACHET)
     Route: 048
     Dates: start: 20180219, end: 20180220
  216. SENNAE [Concomitant]
     Dosage: 1 OTHER (1, EVEY 1 DAY)
     Route: 048
     Dates: start: 20180219, end: 20180220
  217. IBUPROFEN [Concomitant]
     Active Substance: IBUPROFEN
     Indication: Arthralgia
     Dosage: 400 MG, EVERY1 DAY (DOSE FORM: 245)
     Route: 048
     Dates: start: 20150420, end: 20150426
  218. IBUPROFEN [Concomitant]
     Active Substance: IBUPROFEN
     Dosage: 200 MG, BID/EVERY 12 HR (DOSE FORM: 245)
     Route: 048
     Dates: start: 20150420, end: 20150426
  219. IBUPROFEN [Concomitant]
     Active Substance: IBUPROFEN
     Dosage: 400 MG (DOSE FORM: 245)
     Route: 048
     Dates: start: 20161229
  220. IBUPROFEN [Concomitant]
     Active Substance: IBUPROFEN
     Dosage: 400 MG, QD/EVERY1 DAY
     Route: 048
     Dates: start: 20150420, end: 20150426
  221. IBUPROFEN [Concomitant]
     Active Substance: IBUPROFEN
     Dosage: 200 MG, 0.5 DAY
     Route: 048
     Dates: start: 20150420, end: 20150426
  222. ZOPICLONE [Concomitant]
     Active Substance: ZOPICLONE
     Indication: Sleep disorder
     Dosage: 3.75 MG
     Route: 048
     Dates: start: 20151019
  223. ZOPICLONE [Concomitant]
     Active Substance: ZOPICLONE
     Dosage: 3.75 MG (DOSE FORM: 245)
     Route: 048
     Dates: start: 20151019
  224. ZOPICLONE [Concomitant]
     Active Substance: ZOPICLONE
     Dosage: 3.75 MG, QD (3.75 MILLIGRAM, AT NIGHT) (DOSE FORM: 245)
     Route: 048
     Dates: start: 20151019
  225. ZOPICLONE [Concomitant]
     Active Substance: ZOPICLONE
     Dosage: 3.75 MG AT NIGHT
     Route: 048
     Dates: start: 20151019
  226. ZOPICLONE [Concomitant]
     Active Substance: ZOPICLONE
     Dosage: 3.75 MG AS NECESSARY (DOSE FORM: 245)
     Route: 048
     Dates: start: 20151019
  227. MEGACE [Concomitant]
     Active Substance: MEGESTROL ACETATE
     Indication: Menopausal symptoms
     Dosage: 80 MG
     Route: 048
     Dates: start: 20150601
  228. MEGACE [Concomitant]
     Active Substance: MEGESTROL ACETATE
     Dosage: 80 MG BID
     Route: 048
     Dates: start: 20150601
  229. MEGACE [Concomitant]
     Active Substance: MEGESTROL ACETATE
     Dosage: 80 MG (DOSE FORM: 245)
     Route: 048
  230. MEGACE [Concomitant]
     Active Substance: MEGESTROL ACETATE
     Dosage: 80 MG, EVERY 2 DAYS/QOD (DOSE FORM: 245)
     Route: 048
     Dates: start: 20150601
  231. MEGACE [Concomitant]
     Active Substance: MEGESTROL ACETATE
     Dosage: 80 MG, EVERY 2 DAYS
     Route: 048
     Dates: start: 20150601
  232. MEGACE [Concomitant]
     Active Substance: MEGESTROL ACETATE
     Dosage: 80 MG, EVERY 1 DAY (DOSE FORM: 245)
     Route: 048
     Dates: start: 20150601
  233. MEGACE [Concomitant]
     Active Substance: MEGESTROL ACETATE
     Dosage: 80 MG (DOSE FORM: 245)
     Route: 048
     Dates: start: 20150601
  234. MEGACE [Concomitant]
     Active Substance: MEGESTROL ACETATE
     Dosage: 80 MG (DOSE FORM: 245)
  235. ALGINIC ACID [Concomitant]
     Active Substance: ALGINIC ACID
     Dosage: ADDITIONAL INFO: GAVISCON
  236. ALTHAEA OFFICINALIS EXTRACT [Concomitant]
     Indication: Eczema
     Dosage: UNK; ;ADDITIONAL INFO: AQUEOUS EXTRACT FROM ALTHAEA OFFIC. RAD
  237. ALTHAEA OFFICINALIS EXTRACT [Concomitant]
     Dosage: (DOSE FORM: 17)
     Route: 061
     Dates: start: 20181112
  238. ENOXAPARIN SODIUM [Concomitant]
     Active Substance: ENOXAPARIN SODIUM
     Indication: Product used for unknown indication
     Dosage: 40 MG, QD. EVERY1 DAY
     Route: 058
     Dates: start: 20180219, end: 20180220
  239. AVEENO [Concomitant]
     Active Substance: DIMETHICONE\HOMOSALATE\OCTINOXATE\OCTISALATE\TITANIUM DIOXIDE
     Indication: Eczema
     Dosage: DOSE FORM: 17
     Route: 061
     Dates: start: 20190114
  240. MEGESTROL ACETATE [Concomitant]
     Active Substance: MEGESTROL ACETATE
     Indication: Menopausal symptoms
     Dosage: 80 MG, QD/ EVERY 1 DAY (DOSE FORM: 245)
     Route: 048
     Dates: start: 20150601

REACTIONS (32)
  - Sleep disorder [Unknown]
  - Arthralgia [Recovered/Resolved with Sequelae]
  - Gastritis [Recovered/Resolved]
  - Pruritus [Recovered/Resolved]
  - Intentional product misuse [Unknown]
  - Mood swings [Recovered/Resolved]
  - Headache [Recovered/Resolved]
  - Neutropenic sepsis [Recovered/Resolved]
  - Decreased appetite [Recovered/Resolved]
  - Diarrhoea [Recovered/Resolved]
  - Dysgeusia [Not Recovered/Not Resolved]
  - Glossodynia [Unknown]
  - Constipation [Unknown]
  - Nausea [Recovered/Resolved]
  - Hypoaesthesia oral [Recovered/Resolved]
  - Night sweats [Not Recovered/Not Resolved]
  - Off label use [Unknown]
  - Dry skin [Not Recovered/Not Resolved]
  - Lethargy [Not Recovered/Not Resolved]
  - Epistaxis [Recovered/Resolved]
  - Dry eye [Recovered/Resolved]
  - Gastrooesophageal reflux disease [Recovered/Resolved]
  - Epistaxis [Recovered/Resolved]
  - Abdominal pain [Recovered/Resolved]
  - Night sweats [Not Recovered/Not Resolved]
  - Eczema [Recovered/Resolved]
  - Ovarian cyst [Recovered/Resolved]
  - Rash [Recovered/Resolved]
  - Eczema [Recovered/Resolved]
  - Nausea [Recovered/Resolved]
  - Epistaxis [Not Recovered/Not Resolved]
  - Arthralgia [Not Recovered/Not Resolved]

NARRATIVE: CASE EVENT DATE: 20150420
